FAERS Safety Report 6337423-X (Version None)
Quarter: 2009Q3

REPORT INFORMATION
  Report Type: 
  Country: None (occurrence: None)
  Receive Date: 20090902
  Receipt Date: 20090825
  Transmission Date: 20100115
  Serious: Yes (Hospitalization)
  Sender: FDA-Public Use
  Company Number: US-JNJFOC-20080104236

PATIENT
  Sex: Female

DRUGS (12)
  1. ORTHO EVRA [Suspect]
     Indication: CONTRACEPTION
     Route: 062
  2. LORATADINE [Concomitant]
  3. QVAR 40 [Concomitant]
  4. FLUTICASONE [Concomitant]
  5. SINGULAIR [Concomitant]
  6. TIZANIDINE HCL [Concomitant]
  7. AMITRIPTYLINE [Concomitant]
  8. PREVACID [Concomitant]
  9. ANTIVERT [Concomitant]
  10. PROVENTIL-HFA [Concomitant]
  11. ASTELIN [Concomitant]
  12. ALLERGY SHOT [Concomitant]

REACTIONS (2)
  - CEREBROVASCULAR ACCIDENT [None]
  - CONVULSION [None]
